FAERS Safety Report 12115135 (Version 1)
Quarter: 2016Q1

REPORT INFORMATION
  Report Type: Spontaneous
  Country: US (occurrence: US)
  Receive Date: 20160225
  Receipt Date: 20160225
  Transmission Date: 20160526
  Serious: Yes (Hospitalization, Other)
  Sender: FDA-Public Use
  Company Number: US-LANTHEUS-LMI-2015-00556

PATIENT
  Age: 64 Year
  Sex: Male
  Weight: 72 kg

DRUGS (3)
  1. COREG [Concomitant]
     Active Substance: CARVEDILOL
     Indication: PRODUCT USED FOR UNKNOWN INDICATION
  2. DEFINITY [Suspect]
     Active Substance: PERFLUTREN
     Indication: ECHOCARDIOGRAM
     Dosage: 1.5 ML DEFINITY DILUTED IN 8.5 ML NORMAL SALINE
     Route: 040
     Dates: start: 20151007, end: 20151007
  3. DILAUDID [Concomitant]
     Active Substance: HYDROMORPHONE HYDROCHLORIDE
     Indication: PRODUCT USED FOR UNKNOWN INDICATION

REACTIONS (9)
  - Respiratory distress [Recovered/Resolved]
  - Hypoxia [Recovered/Resolved]
  - Skin discolouration [Recovered/Resolved]
  - Panic reaction [Recovered/Resolved]
  - Wheezing [Recovered/Resolved]
  - Tachycardia [Recovered/Resolved]
  - Neck pain [Recovered/Resolved]
  - Hypotension [Recovered/Resolved]
  - Back pain [Recovered/Resolved]

NARRATIVE: CASE EVENT DATE: 20151007
